FAERS Safety Report 7420906-9 (Version None)
Quarter: 2011Q2

REPORT INFORMATION
  Report Type: 
  Country: None (occurrence: None)
  Receive Date: 20110418
  Receipt Date: 20110408
  Transmission Date: 20111010
  Serious: Yes (Death, Life-Threatening, Hospitalization)
  Sender: FDA-Public Use
  Company Number: B0698599A

PATIENT
  Age: 65 Year
  Sex: Female
  Weight: 68 kg

DRUGS (1)
  1. ARIXTRA [Suspect]
     Indication: GASTRECTOMY
     Dosage: 2.5MG PER DAY
     Route: 058
     Dates: start: 20110115, end: 20110121

REACTIONS (1)
  - GASTROINTESTINAL HAEMORRHAGE [None]
